FAERS Safety Report 8202060-9 (Version None)
Quarter: 2012Q1

REPORT INFORMATION
  Report Type: 
  Country: None (occurrence: None)
  Receive Date: 20120308
  Receipt Date: 20120224
  Transmission Date: 20120608
  Serious: Yes (Hospitalization, Other)
  Sender: FDA-Public Use
  Company Number: INT_00059_2012

PATIENT
  Age: 5 Day
  Sex: Male
  Weight: 1.8 kg

DRUGS (3)
  1. FRESH FROZEN PLASMA [Concomitant]
  2. AMPICILLIN W/SULBACTAM /00892601/ [Concomitant]
  3. CEFTAZIDIME [Suspect]
     Indication: SEPSIS
     Dosage: 100 MG/KG/DAY 2 DOSES

REACTIONS (1)
  - CHOLELITHIASIS [None]
